FAERS Safety Report 13349104 (Version 2)
Quarter: 2017Q1

REPORT INFORMATION
  Report Type: Spontaneous
  Country: DE (occurrence: AU)
  Receive Date: 20170320
  Receipt Date: 20170320
  Transmission Date: 20170428
  Serious: Yes (Hospitalization, Other)
  Sender: FDA-Public Use
  Company Number: AU-TORRENT-00000033

PATIENT
  Age: 58 Year
  Sex: Male

DRUGS (5)
  1. OLANZAPINE. [Suspect]
     Active Substance: OLANZAPINE
  2. VALPROATE SODIUM. [Suspect]
     Active Substance: VALPROATE SODIUM
  3. ALLOPURINOL. [Suspect]
     Active Substance: ALLOPURINOL
  4. CLOZARIL [Suspect]
     Active Substance: CLOZAPINE
  5. TAZOCIN [Suspect]
     Active Substance: PIPERACILLIN SODIUM\TAZOBACTAM SODIUM

REACTIONS (19)
  - Agranulocytosis [Unknown]
  - Thinking abnormal [Unknown]
  - Aggression [Unknown]
  - Leukopenia [Unknown]
  - White blood cell count decreased [Unknown]
  - Hallucination, auditory [Unknown]
  - Cholecystitis [Unknown]
  - Thrombocytopenia [Unknown]
  - Dystonia [Unknown]
  - Extrapyramidal disorder [Unknown]
  - Liver abscess [Unknown]
  - Serum ferritin increased [Unknown]
  - Persecutory delusion [Unknown]
  - Sepsis [Unknown]
  - Neutrophil count decreased [Unknown]
  - Empyema [Unknown]
  - Seizure [Unknown]
  - Lower respiratory tract infection [Unknown]
  - Mental impairment [Unknown]

NARRATIVE: CASE EVENT DATE: 20160713
